FAERS Safety Report 9665827 (Version 3)
Quarter: 2015Q2

REPORT INFORMATION
  Report Type: Spontaneous
  Country: US (occurrence: US)
  Receive Date: 20131104
  Receipt Date: 20150506
  Transmission Date: 20150821
  Serious: No
  Sender: FDA-Public Use
  Company Number: US-ASTELLAS-2013US011321

PATIENT
  Sex: Female

DRUGS (3)
  1. PROVENTIL                          /00139501/ [Concomitant]
     Indication: PRODUCT USED FOR UNKNOWN INDICATION
     Dosage: UNK UNK, UNKNOWN FREQ.
     Route: 065
  2. DULERA [Concomitant]
     Active Substance: FORMOTEROL FUMARATE DIHYDRATE\MOMETASONE FUROATE
     Indication: PRODUCT USED FOR UNKNOWN INDICATION
     Dosage: UNK UNK, TWICE DAILY
     Route: 065
  3. VESICARE [Suspect]
     Active Substance: SOLIFENACIN SUCCINATE
     Indication: HYPERTONIC BLADDER
     Route: 065
     Dates: start: 201308, end: 201310

REACTIONS (8)
  - Drug effect incomplete [Unknown]
  - Dry mouth [Unknown]
  - Cough [Unknown]
  - Amnesia [Unknown]
  - Headache [Unknown]
  - Asthma [Recovering/Resolving]
  - Abdominal pain upper [Unknown]
  - Gastritis [Unknown]
